FAERS Safety Report 4938996-1 (Version None)
Quarter: 2006Q1

REPORT INFORMATION
  Report Type: 
  Country: None (occurrence: None)
  Receive Date: 20060309
  Receipt Date: 20050225
  Transmission Date: 20060701
  Serious: Yes (Hospitalization, Other)
  Sender: FDA-Public Use
  Company Number: US-MERCK-0503USA00091

PATIENT
  Age: 66 Year
  Sex: Female
  Weight: 50 kg

DRUGS (21)
  1. VIOXX [Suspect]
     Indication: ARTHRITIS
     Route: 048
     Dates: start: 20010406, end: 20040907
  2. VIOXX [Suspect]
     Indication: PAIN
     Route: 048
     Dates: start: 20010406, end: 20040907
  3. ADVAIR DISKUS 100/50 [Concomitant]
     Indication: ASTHMA
     Route: 065
  4. DILANTIN [Concomitant]
     Indication: EPILEPSY
     Route: 065
  5. SINGULAIR [Concomitant]
     Indication: HEADACHE
     Route: 065
  6. VITAMIN B COMPLEX [Concomitant]
     Route: 065
  7. AMITRIPTYLINE HYDROCHLORIDE [Concomitant]
     Indication: DEPRESSION
     Route: 065
  8. LEVOXYL [Concomitant]
     Indication: HYPOTHYROIDISM
     Route: 065
     Dates: start: 19730101
  9. PREDNISONE [Concomitant]
     Indication: PAIN
     Route: 065
     Dates: start: 20030101
  10. PREDNISONE [Concomitant]
     Indication: DYSPNOEA
     Route: 065
     Dates: start: 20030101
  11. PLAVIX [Concomitant]
     Indication: CARDIAC DISORDER
     Route: 065
  12. ALBUTEROL [Concomitant]
     Indication: ASTHMA
     Route: 065
  13. LORTAB [Concomitant]
     Indication: PAIN
     Route: 065
     Dates: start: 19910101
  14. LORTAB [Concomitant]
     Indication: BACK DISORDER
     Route: 065
     Dates: start: 19910101
  15. METFORMIN [Concomitant]
     Indication: DIABETES MELLITUS
     Route: 065
  16. PROZAC [Concomitant]
     Indication: DEPRESSION
     Route: 065
  17. ALLEGRA [Concomitant]
     Indication: HYPERSENSITIVITY
     Route: 065
  18. VITAMINS (UNSPECIFIED) [Concomitant]
     Indication: MEDICAL DIET
     Route: 065
  19. ZONEGRAN [Concomitant]
     Indication: EPILEPSY
     Route: 065
  20. DITROPAN XL [Concomitant]
     Indication: INCONTINENCE
     Route: 065
  21. ASPIRIN [Concomitant]
     Indication: PAIN
     Route: 065

REACTIONS (6)
  - CEREBROVASCULAR ACCIDENT [None]
  - CONVULSION [None]
  - DEPRESSED LEVEL OF CONSCIOUSNESS [None]
  - DYSPNOEA [None]
  - FALL [None]
  - SYNCOPE [None]
